FAERS Safety Report 4472366-8 (Version None)
Quarter: 2004Q4

REPORT INFORMATION
  Report Type: 
  Country: None (occurrence: None)
  Receive Date: 20041007
  Receipt Date: 20040927
  Transmission Date: 20050328
  Serious: Yes (Hospitalization)
  Sender: FDA-Public Use
  Company Number: 205358

PATIENT
  Sex: Female

DRUGS (2)
  1. AVONEX [Suspect]
     Indication: MULTIPLE SCLEROSIS
     Dosage: 30 MCG QW IM
     Route: 030
     Dates: start: 19990101, end: 20040301
  2. AVONEX [Suspect]
     Indication: MULTIPLE SCLEROSIS
     Dosage: 30 MCG QW IM
     Route: 030
     Dates: start: 20040301

REACTIONS (8)
  - BLADDER PROLAPSE [None]
  - FALL [None]
  - FLUID RETENTION [None]
  - HYPOTENSION [None]
  - SKIN LACERATION [None]
  - SKIN ULCER [None]
  - URINARY TRACT INFECTION [None]
  - WEIGHT INCREASED [None]
